FAERS Safety Report 8241389-5 (Version None)
Quarter: 2012Q1

REPORT INFORMATION
  Report Type: 
  Country: None (occurrence: None)
  Receive Date: 20120314
  Receipt Date: 20110526
  Transmission Date: 20120608
  Serious: No
  Sender: FDA-Public Use
  Company Number: PHHY2011US47130

PATIENT
  Sex: Female

DRUGS (1)
  1. FANAPT [Suspect]
     Dosage: 1 MG, BID, ORAL
     Route: 048

REACTIONS (2)
  - HYPOAESTHESIA [None]
  - SWOLLEN TONGUE [None]
